FAERS Safety Report 8823234 (Version 1)
Quarter: 2012Q4

REPORT INFORMATION
  Report Type: 
  Country: US (occurrence: US)
  Receive Date: 20121003
  Receipt Date: 20121003
  Transmission Date: 20130627
  Serious: Yes (Hospitalization)
  Sender: FDA-Public Use
  Company Number: US-GLAXOSMITHKLINE-A0775138A

PATIENT
  Age: 65 Year
  Sex: Male

DRUGS (1)
  1. AVANDIA [Suspect]
     Indication: DIABETES MELLITUS
     Route: 048
     Dates: start: 2000, end: 2007

REACTIONS (5)
  - Myocardial infarction [Not Recovered/Not Resolved]
  - Sick sinus syndrome [Unknown]
  - Stent placement [Unknown]
  - Cardiac pacemaker insertion [Unknown]
  - Syncope [Unknown]
